FAERS Safety Report 18450317 (Version 3)
Quarter: 2021Q1

REPORT INFORMATION
  Report Type: Spontaneous
  Country: MY (occurrence: MY)
  Receive Date: 20201030
  Receipt Date: 20210122
  Transmission Date: 20210419
  Serious: Yes (Hospitalization)
  Sender: FDA-Public Use
  Company Number: MY-NOVOPROD-760722

PATIENT
  Age: 26 Year
  Sex: Female
  Weight: 89.5 kg

DRUGS (11)
  1. CALCIUM CARBONATE. [Concomitant]
     Active Substance: CALCIUM CARBONATE
     Dosage: 1 G, BID
     Route: 048
     Dates: start: 20200427
  2. LEVEMIR [Suspect]
     Active Substance: INSULIN DETEMIR
     Dosage: 13 IU, QD
     Route: 058
  3. LEVEMIR [Suspect]
     Active Substance: INSULIN DETEMIR
     Dosage: 18 IU, QD
     Route: 058
  4. METFORMIN [Concomitant]
     Active Substance: METFORMIN HYDROCHLORIDE
     Dosage: 500 MG, BID
     Route: 048
     Dates: start: 20200624, end: 20200930
  5. METFORMIN [Concomitant]
     Active Substance: METFORMIN HYDROCHLORIDE
     Dosage: 1 G, QD (DOSE AT LUNCH)
     Route: 048
     Dates: start: 20201001
  6. LEVEMIR [Suspect]
     Active Substance: INSULIN DETEMIR
     Dosage: 12 IU, QD
     Route: 058
  7. LEVEMIR [Suspect]
     Active Substance: INSULIN DETEMIR
     Indication: GESTATIONAL DIABETES
     Dosage: 12 IU, QD
     Route: 058
     Dates: start: 20200804
  8. ASPIRIN [ACETYLSALICYLIC ACID] [Concomitant]
     Active Substance: ASPIRIN
     Dosage: 150 MG, QD
     Route: 048
     Dates: start: 20200427
  9. LEVEMIR [Suspect]
     Active Substance: INSULIN DETEMIR
     Dosage: 18 IU, QD
     Route: 058
  10. METHYLDOPA. [Concomitant]
     Active Substance: METHYLDOPA
     Dosage: 500 MG, TID
     Route: 048
     Dates: start: 20200427
  11. LEVEMIR [Suspect]
     Active Substance: INSULIN DETEMIR
     Dosage: 16 IU, QD
     Route: 058

REACTIONS (4)
  - Blood glucose abnormal [Unknown]
  - Maternal exposure during pregnancy [Recovered/Resolved]
  - Gestational hypertension [Recovered/Resolved]
  - Hypoglycaemia [Not Recovered/Not Resolved]

NARRATIVE: CASE EVENT DATE: 20200804
